FAERS Safety Report 8188633-0 (Version None)
Quarter: 2012Q1

REPORT INFORMATION
  Report Type: 
  Country: None (occurrence: None)
  Receive Date: 20120306
  Receipt Date: 20120228
  Transmission Date: 20120608
  Serious: Yes (Hospitalization)
  Sender: FDA-Public Use
  Company Number: US-ASTRAZENECA-2010SE57015

PATIENT
  Age: 67 Year
  Sex: Female
  Weight: 35.4 kg

DRUGS (4)
  1. NEXIUM [Suspect]
     Indication: GASTROOESOPHAGEAL REFLUX DISEASE
     Route: 048
  2. THEOPHYLLINE [Concomitant]
     Indication: ASTHMA
     Route: 048
  3. SYMBICORT [Suspect]
     Route: 055
  4. NEXIUM [Suspect]
     Dosage: TWICE A DAY
     Route: 048

REACTIONS (14)
  - DYSPEPSIA [None]
  - COUGH [None]
  - PNEUMONIA [None]
  - DYSPNOEA [None]
  - MALAISE [None]
  - EPIGASTRIC DISCOMFORT [None]
  - WHEEZING [None]
  - CHEST DISCOMFORT [None]
  - FLATULENCE [None]
  - DRUG DOSE OMISSION [None]
  - THROAT IRRITATION [None]
  - OFF LABEL USE [None]
  - PYREXIA [None]
  - ERUCTATION [None]
